FAERS Safety Report 4284042-5 (Version None)
Quarter: 2004Q1

REPORT INFORMATION
  Report Type: 
  Country: None (occurrence: None)
  Receive Date: 20040202
  Receipt Date: 20040202
  Transmission Date: 20041129
  Serious: Yes (Hospitalization)
  Sender: FDA-Public Use
  Company Number: None

PATIENT
  Age: 49 Year
  Sex: Female
  Weight: 74.8435 kg

DRUGS (2)
  1. DEPAKOTE [Suspect]
     Indication: BIPOLAR DISORDER
     Dosage: 500 TWICE A DA ORAL
     Route: 048
     Dates: start: 19930101, end: 20040115
  2. GEMFIBROZIL [Suspect]
     Indication: HYPERLIPIDAEMIA
     Dosage: 600 MG TWICE A DA ORAL
     Route: 048
     Dates: start: 20030801, end: 20040801

REACTIONS (4)
  - DEHYDRATION [None]
  - HEPATOCELLULAR DAMAGE [None]
  - PANCREATITIS [None]
  - VOMITING [None]
